FAERS Safety Report 12328406 (Version 2)
Quarter: 2016Q2

REPORT INFORMATION
  Report Type: Spontaneous
  Country: BR (occurrence: BR)
  Receive Date: 20160503
  Receipt Date: 20160505
  Transmission Date: 20160815
  Serious: Yes (Hospitalization)
  Sender: FDA-Public Use
  Company Number: BR-JNJFOC-20160425437

PATIENT
  Sex: Male

DRUGS (5)
  1. AMOXICILLIN. [Suspect]
     Active Substance: AMOXICILLIN
     Indication: INFLUENZA
     Route: 064
     Dates: start: 201604
  2. DIPYRONE [Suspect]
     Active Substance: DIPYRONE
     Indication: INFLUENZA
     Route: 064
     Dates: start: 201604
  3. PHYSIOLOGICAL SALINE SOLUTION [Suspect]
     Active Substance: SODIUM CHLORIDE
     Indication: INFLUENZA
     Route: 064
     Dates: start: 201604
  4. PARACETAMOL [Suspect]
     Active Substance: ACETAMINOPHEN
     Route: 064
  5. PARACETAMOL [Suspect]
     Active Substance: ACETAMINOPHEN
     Indication: INFLUENZA
     Route: 064
     Dates: start: 201604

REACTIONS (2)
  - Premature baby [Unknown]
  - Foetal exposure during pregnancy [Unknown]

NARRATIVE: CASE EVENT DATE: 201604
